FAERS Safety Report 24292308 (Version 2)
Quarter: 2024Q4

REPORT INFORMATION
  Report Type: Spontaneous
  Country: US (occurrence: US)
  Receive Date: 20240906
  Receipt Date: 20241017
  Transmission Date: 20250115
  Serious: Yes (Other)
  Sender: CALLIDITAS THERAPEUTICS AB
  Company Number: US-Calliditas-2024CAL01716

PATIENT
  Age: 69 Year
  Sex: Female
  Weight: 54.8 kg

DRUGS (1)
  1. TARPEYO [Suspect]
     Active Substance: BUDESONIDE
     Indication: IgA nephropathy
     Route: 048
     Dates: start: 20240708, end: 20241009

REACTIONS (14)
  - Weight increased [Unknown]
  - Cushingoid [Unknown]
  - Joint swelling [Unknown]
  - Anxiety [Unknown]
  - Palpitations [Unknown]
  - Affective disorder [Unknown]
  - Depression [Unknown]
  - Suicidal ideation [Unknown]
  - Brain fog [Unknown]
  - Dysuria [Unknown]
  - Intraocular pressure increased [Unknown]
  - Fatigue [Unknown]
  - Swelling [Unknown]
  - Loss of personal independence in daily activities [Unknown]
